FAERS Safety Report 18090291 (Version 1)
Quarter: 2020Q3

REPORT INFORMATION
  Report Type: Spontaneous
  Country: US (occurrence: US)
  Receive Date: 20200730
  Receipt Date: 20200730
  Transmission Date: 20201103
  Serious: Yes (Other)
  Sender: FDA-Public Use
  Company Number: US-STRIDES ARCOLAB LIMITED-2019SP006543

PATIENT
  Sex: Male

DRUGS (13)
  1. MYCOPHENOLATE MOFETIL. [Suspect]
     Active Substance: MYCOPHENOLATE MOFETIL
     Indication: FACTOR XIII INHIBITION
     Dosage: UNK
     Route: 065
     Dates: start: 20120815, end: 2013
  2. CYCLOPHOSPHAMIDE. [Suspect]
     Active Substance: CYCLOPHOSPHAMIDE
     Indication: FACTOR XIII INHIBITION
     Dosage: UNK
     Route: 048
     Dates: start: 20150528, end: 20150617
  3. AZATHIOPRINE. [Suspect]
     Active Substance: AZATHIOPRINE
     Indication: FACTOR XIII INHIBITION
     Dosage: UNK
     Route: 065
     Dates: end: 201501
  4. RITUXIMAB. [Suspect]
     Active Substance: RITUXIMAB
     Dosage: UNK
     Route: 065
     Dates: start: 2016, end: 2016
  5. RITUXIMAB. [Suspect]
     Active Substance: RITUXIMAB
     Dosage: UNK
     Route: 065
     Dates: start: 2013, end: 2013
  6. MYCOPHENOLATE MOFETIL. [Suspect]
     Active Substance: MYCOPHENOLATE MOFETIL
     Dosage: UNK
     Route: 065
     Dates: start: 2015, end: 2015
  7. AZATHIOPRINE. [Suspect]
     Active Substance: AZATHIOPRINE
     Dosage: UNK
     Route: 065
     Dates: start: 2014, end: 2014
  8. CICLOSPORIN [Suspect]
     Active Substance: CYCLOSPORINE
     Indication: FACTOR XIII INHIBITION
     Dosage: UNK
     Route: 065
     Dates: start: 2014, end: 2014
  9. CLADRIBINE. [Suspect]
     Active Substance: CLADRIBINE
     Indication: FACTOR XIII INHIBITION
     Dosage: UNK
     Route: 065
     Dates: start: 2014, end: 2014
  10. RITUXIMAB. [Suspect]
     Active Substance: RITUXIMAB
     Indication: FACTOR XIII INHIBITION
     Dosage: UNK
     Route: 065
     Dates: start: 2014, end: 2014
  11. BORTEZOMIB. [Suspect]
     Active Substance: BORTEZOMIB
     Indication: FACTOR XIII INHIBITION
     Dosage: UNK
     Route: 065
     Dates: start: 2014, end: 2014
  12. TACROLIMUS. [Suspect]
     Active Substance: TACROLIMUS
     Indication: FACTOR XIII INHIBITION
     Dosage: UNK
     Route: 065
     Dates: start: 2015, end: 2015
  13. CYCLOPHOSPHAMIDE. [Suspect]
     Active Substance: CYCLOPHOSPHAMIDE
     Dosage: UNK
     Route: 048
     Dates: start: 20130807, end: 20131127

REACTIONS (1)
  - Drug ineffective for unapproved indication [Unknown]
